FAERS Safety Report 14012065 (Version 3)
Quarter: 2017Q4

REPORT INFORMATION
  Report Type: Report from Study
  Country: CO (occurrence: CO)
  Receive Date: 20170926
  Receipt Date: 20171030
  Transmission Date: 20180321
  Serious: Yes (Hospitalization, Other)
  Sender: FDA-Public Use
  Company Number: PHHY2017CO138250

PATIENT
  Sex: Male
  Weight: 72 kg

DRUGS (5)
  1. PREDNISOLONE. [Concomitant]
     Active Substance: PREDNISOLONE
     Indication: PRODUCT USED FOR UNKNOWN INDICATION
     Dosage: 50 MG,FOR 3 DAYS
     Route: 065
  2. REVOLADE [Suspect]
     Active Substance: ELTROMBOPAG
     Dosage: 2 DF, BID
     Route: 048
  3. REVOLADE [Suspect]
     Active Substance: ELTROMBOPAG
     Indication: THROMBOCYTOPENIC PURPURA
     Dosage: 2 TABLETS OF 50 MG ONE DAY AND 1 TABLET OF 50 MG THE NEXT DAY
     Route: 048
     Dates: start: 20170809
  4. REVOLADE [Suspect]
     Active Substance: ELTROMBOPAG
     Dosage: 2 DF, QD
     Route: 048
  5. PREDNISOLONE. [Concomitant]
     Active Substance: PREDNISOLONE
     Dosage: 25 OT, UNK
     Route: 065

REACTIONS (10)
  - Pyrexia [Unknown]
  - Inappropriate schedule of drug administration [Unknown]
  - Platelet count decreased [Recovering/Resolving]
  - Headache [Unknown]
  - Off label use [Unknown]
  - Ecchymosis [Unknown]
  - Contusion [Unknown]
  - Malaise [Unknown]
  - Hyperhidrosis [Unknown]
  - Petechiae [Unknown]
